FAERS Safety Report 5245035-4 (Version None)
Quarter: 2007Q1

REPORT INFORMATION
  Report Type: 
  Country: None (occurrence: None)
  Receive Date: 20070223
  Receipt Date: 20070212
  Transmission Date: 20070707
  Serious: Yes (Hospitalization)
  Sender: FDA-Public Use
  Company Number: FR-JNJFOC-20060101538

PATIENT
  Age: 25 Year
  Sex: Female
  Weight: 60 kg

DRUGS (7)
  1. REMICADE [Suspect]
     Dosage: 6TH INFUSION
     Route: 042
  2. REMICADE [Suspect]
     Indication: CROHN'S DISEASE
     Dosage: 6TH INFUSION
     Route: 042
  3. POLARAMINE [Suspect]
     Indication: PROPHYLAXIS
     Route: 042
  4. HYDROCORTISONE [Suspect]
     Indication: PROPHYLAXIS
     Route: 042
  5. AZATHIOPRINE SODIUM [Concomitant]
     Dosage: 2.5MG/KG
     Route: 048
  6. FERROUS SULFATE TAB [Concomitant]
     Route: 065
  7. GLUCOSE [Concomitant]
     Route: 065

REACTIONS (4)
  - ATRIOVENTRICULAR BLOCK COMPLETE [None]
  - LOSS OF CONSCIOUSNESS [None]
  - MALAISE [None]
  - SYNCOPE [None]
